FAERS Safety Report 22302209 (Version 1)
Quarter: 2023Q2

REPORT INFORMATION
  Report Type: Spontaneous
  Country: FR (occurrence: FR)
  Receive Date: 20230510
  Receipt Date: 20230510
  Transmission Date: 20230722
  Serious: Yes (Life-Threatening, Hospitalization, Other)
  Sender: FDA-Public Use
  Company Number: FR-ALKEM LABORATORIES LIMITED-FR-ALKEM-2023-04093

PATIENT
  Age: 80 Year
  Sex: Male
  Weight: 88 kg

DRUGS (1)
  1. DABIGATRAN ETEXILATE MESYLATE [Suspect]
     Active Substance: DABIGATRAN ETEXILATE MESYLATE
     Indication: Prophylaxis
     Dosage: 110 MILLIGRAM, BID (FOR 3 MONTHS)
     Route: 065

REACTIONS (8)
  - Acute kidney injury [Recovering/Resolving]
  - Hyperkalaemia [Unknown]
  - Melaena [Unknown]
  - Haematuria [Unknown]
  - Anaemia [Recovering/Resolving]
  - Drug level increased [Recovering/Resolving]
  - Overdose [Unknown]
  - Off label use [Unknown]
